FAERS Safety Report 10089801 (Version 4)
Quarter: 2014Q2

REPORT INFORMATION
  Report Type: Spontaneous
  Country: DE (occurrence: DE)
  Receive Date: 20140421
  Receipt Date: 20140625
  Transmission Date: 20141212
  Serious: Yes (Other)
  Sender: FDA-Public Use
  Company Number: DE-ELI_LILLY_AND_COMPANY-DE201404004307

PATIENT
  Sex: Female

DRUGS (4)
  1. STRATTERA [Suspect]
     Indication: ATTENTION DEFICIT/HYPERACTIVITY DISORDER
     Dosage: 10 MG, QD
     Route: 048
     Dates: start: 20140318
  2. STRATTERA [Suspect]
     Dosage: 40 MG, QD
     Route: 048
  3. STRATTERA [Suspect]
     Dosage: 60 MG, QD
     Route: 048
  4. STRATTERA [Suspect]
     Dosage: 40 MG, QD
     Route: 048
     Dates: start: 20140415

REACTIONS (5)
  - Atrioventricular block first degree [Recovered/Resolved]
  - Atrioventricular block second degree [Recovered/Resolved]
  - Logorrhoea [Recovered/Resolved]
  - Dizziness [Recovered/Resolved]
  - Somnolence [Recovered/Resolved]
